FAERS Safety Report 5927931-5 (Version None)
Quarter: 2008Q4

REPORT INFORMATION
  Report Type: 
  Country: None (occurrence: None)
  Receive Date: 20081023
  Receipt Date: 20081009
  Transmission Date: 20090506
  Serious: Yes (Other)
  Sender: FDA-Public Use
  Company Number: SE-GENENTECH-268596

PATIENT
  Age: 58 Year
  Sex: Female

DRUGS (8)
  1. MABTHERA [Suspect]
     Indication: RHEUMATOID ARTHRITIS
     Dosage: UNK
     Route: 042
     Dates: start: 20070605, end: 20080507
  2. PREDNISOLONE [Concomitant]
     Indication: RHEUMATOID ARTHRITIS
     Dosage: 7.5 MG, QD
     Route: 048
     Dates: start: 20070101
  3. METHOTREXATE [Concomitant]
     Indication: RHEUMATOID ARTHRITIS
     Dosage: 15 MG, 1/WEEK
     Route: 058
  4. ZOLOFT [Concomitant]
     Indication: DRUG USE FOR UNKNOWN INDICATION
  5. OMEPRAZOLE [Concomitant]
     Indication: DRUG USE FOR UNKNOWN INDICATION
  6. FOLACIN [Concomitant]
     Indication: DRUG USE FOR UNKNOWN INDICATION
  7. ORUDIS [Concomitant]
     Indication: DRUG USE FOR UNKNOWN INDICATION
  8. CALCICHEW D3 [Concomitant]
     Indication: DRUG USE FOR UNKNOWN INDICATION

REACTIONS (2)
  - ANAEMIA [None]
  - GASTROINTESTINAL HAEMORRHAGE [None]
